FAERS Safety Report 20576697 (Version 2)
Quarter: 2022Q1

REPORT INFORMATION
  Report Type: Spontaneous
  Country: JP (occurrence: JP)
  Receive Date: 20220310
  Receipt Date: 20220322
  Transmission Date: 20220423
  Serious: Yes (Hospitalization)
  Sender: FDA-Public Use
  Company Number: JP-TEVA-2022-JP-2014030

PATIENT
  Age: 83 Year
  Sex: Female

DRUGS (2)
  1. ARIPIPRAZOLE [Suspect]
     Active Substance: ARIPIPRAZOLE
     Indication: Schizophrenia
     Dosage: 24 MILLIGRAM DAILY;
     Route: 065
  2. ARIPIPRAZOLE [Suspect]
     Active Substance: ARIPIPRAZOLE
     Dosage: INITIAL DOSAGE NOT STATED
     Route: 065

REACTIONS (3)
  - Hallucination, auditory [Recovering/Resolving]
  - Persecutory delusion [Recovering/Resolving]
  - Drug ineffective [Unknown]
